FAERS Safety Report 20524539 (Version 1)
Quarter: 2022Q1

REPORT INFORMATION
  Report Type: Spontaneous
  Country: FR (occurrence: FR)
  Receive Date: 20220228
  Receipt Date: 20220228
  Transmission Date: 20220423
  Serious: Yes (Disabling, Other)
  Sender: FDA-Public Use
  Company Number: FR-ASTELLAS-2022US007286

PATIENT
  Age: 89 Year
  Sex: Male

DRUGS (3)
  1. XTANDI [Suspect]
     Active Substance: ENZALUTAMIDE
     Indication: Prostate cancer
     Dosage: 4 DF (40MG X 4DF), ONCE DAILY (AT NOON)
     Route: 048
     Dates: start: 2021
  2. XTANDI [Suspect]
     Active Substance: ENZALUTAMIDE
     Dosage: 4 DF (40MG X 4DF), ONCE DAILY (AT 11 PM)
     Route: 048
     Dates: start: 202202
  3. XARELTO [Concomitant]
     Active Substance: RIVAROXABAN
     Indication: Product used for unknown indication
     Dosage: 15 MG, ONCE DAILY (ONE PER DAY, AT NOON)
     Route: 065

REACTIONS (9)
  - Constipation [Recovering/Resolving]
  - Hypertension [Recovering/Resolving]
  - Vertigo [Recovering/Resolving]
  - Fall [Recovered/Resolved]
  - Orthostatic hypotension [Unknown]
  - Abdominal pain [Unknown]
  - Insomnia [Recovered/Resolved]
  - Stress [Unknown]
  - Anxiety [Unknown]

NARRATIVE: CASE EVENT DATE: 20210101
